FAERS Safety Report 24080558 (Version 1)
Quarter: 2024Q3

REPORT INFORMATION
  Report Type: Spontaneous
  Country: US (occurrence: US)
  Receive Date: 20240711
  Receipt Date: 20240711
  Transmission Date: 20241017
  Serious: No
  Sender: KARYOPHARM THERAPEUTICS
  Company Number: US-KARYOPHARM-2024KPT001060

PATIENT

DRUGS (14)
  1. XPOVIO [Suspect]
     Active Substance: SELINEXOR
     Indication: Plasma cell myeloma
     Dosage: 60 MG, WEEKLY
     Route: 048
     Dates: start: 20240503, end: 202405
  2. POMALYST [Concomitant]
     Active Substance: POMALIDOMIDE
  3. CELECOXIB [Concomitant]
     Active Substance: CELECOXIB
  4. DESLORATADINE [Concomitant]
     Active Substance: DESLORATADINE
  5. DEXAMETHASONE [Concomitant]
     Active Substance: DEXAMETHASONE
  6. LISDEXAMFETAMINE [Concomitant]
     Active Substance: LISDEXAMFETAMINE
  7. OLANZAPINE [Concomitant]
     Active Substance: OLANZAPINE
  8. ZOFRAN [Concomitant]
     Active Substance: ONDANSETRON HYDROCHLORIDE
  9. PROPRANOLOL [Concomitant]
     Active Substance: PROPRANOLOL HYDROCHLORIDE
  10. XGEVA [Concomitant]
     Active Substance: DENOSUMAB
  11. ACYCLOVIR [Concomitant]
     Active Substance: ACYCLOVIR
  12. ASPIRIN [Concomitant]
     Active Substance: ASPIRIN
  13. MELATONIN [Concomitant]
     Active Substance: MELATONIN
  14. PROCHLORPERAZINE [Concomitant]
     Active Substance: PROCHLORPERAZINE

REACTIONS (6)
  - Paraesthesia [Unknown]
  - Hypoaesthesia [Unknown]
  - Taste disorder [Unknown]
  - Fatigue [Unknown]
  - Decreased appetite [Unknown]
  - Drug ineffective [Unknown]

NARRATIVE: CASE EVENT DATE: 20240501
